FAERS Safety Report 21224679 (Version 1)
Quarter: 2022Q3

REPORT INFORMATION
  Report Type: Spontaneous
  Country: US (occurrence: US)
  Receive Date: 20220817
  Receipt Date: 20220817
  Transmission Date: 20221027
  Serious: No
  Sender: FDA-Public Use
  Company Number: US-OTSUKA-2022_031233

PATIENT
  Age: 72 Year
  Sex: Female

DRUGS (1)
  1. ABILIFY MAINTENA [Suspect]
     Active Substance: ARIPIPRAZOLE
     Indication: Schizoaffective disorder
     Dosage: 300 MG, UNK
     Route: 065
     Dates: start: 20220526

REACTIONS (5)
  - Affective disorder [Unknown]
  - Memory impairment [Unknown]
  - Underdose [Unknown]
  - Product use in unapproved indication [Unknown]
  - Treatment noncompliance [Unknown]
